FAERS Safety Report 9250928 (Version 3)
Quarter: 2015Q1

REPORT INFORMATION
  Report Type: Spontaneous
  Country: US (occurrence: US)
  Receive Date: 20130424
  Receipt Date: 20150330
  Transmission Date: 20150721
  Serious: No
  Sender: FDA-Public Use
  Company Number: US-ASTRAZENECA-2013SE27189

PATIENT
  Age: 50 Year
  Sex: Male

DRUGS (17)
  1. MYLANTA [Concomitant]
     Active Substance: ALUMINUM HYDROXIDE\MAGNESIUM HYDROXIDE\SIMETHICONE
  2. MULTIVITAMIN [Concomitant]
     Active Substance: VITAMINS
  3. NEXIUM [Suspect]
     Active Substance: ESOMEPRAZOLE MAGNESIUM
     Indication: GASTROOESOPHAGEAL REFLUX DISEASE
     Route: 048
     Dates: start: 1992, end: 2010
  4. PEPCID [Concomitant]
     Active Substance: FAMOTIDINE
  5. FOSAMAX [Concomitant]
     Active Substance: ALENDRONATE SODIUM
     Route: 048
     Dates: start: 20010502
  6. BONIVA [Concomitant]
     Active Substance: IBANDRONATE SODIUM
     Dates: start: 20080401
  7. FISH OIL [Concomitant]
     Active Substance: FISH OIL
  8. METOCLOPRAMIDE. [Concomitant]
     Active Substance: METOCLOPRAMIDE
     Route: 048
     Dates: start: 20100528
  9. NEXIUM [Suspect]
     Active Substance: ESOMEPRAZOLE MAGNESIUM
     Indication: GASTROOESOPHAGEAL REFLUX DISEASE
     Route: 048
     Dates: start: 20010801
  10. ASPIRIN. [Concomitant]
     Active Substance: ASPIRIN
  11. ZANTAC [Concomitant]
     Active Substance: RANITIDINE HYDROCHLORIDE
     Dates: start: 2008
  12. DEXILANT [Concomitant]
     Active Substance: DEXLANSOPRAZOLE
     Route: 048
     Dates: start: 20100519
  13. GAVISCON [Concomitant]
     Active Substance: ALUMINUM HYDROXIDE\MAGNESIUM CARBONATE
  14. ALPRAZOLAM. [Concomitant]
     Active Substance: ALPRAZOLAM
     Dates: start: 20100401
  15. PANTOPRAZOLE [Concomitant]
     Active Substance: PANTOPRAZOLE SODIUM
     Route: 048
     Dates: start: 20090120
  16. FOSAMAX [Concomitant]
     Active Substance: ALENDRONATE SODIUM
     Route: 048
     Dates: start: 20000405
  17. CLARINEX [Concomitant]
     Active Substance: DESLORATADINE
     Route: 048
     Dates: start: 20020228

REACTIONS (6)
  - Bone disorder [Unknown]
  - Arthritis [Unknown]
  - Multiple fractures [Unknown]
  - Panic attack [Unknown]
  - Anxiety [Unknown]
  - Osteoporosis [Unknown]

NARRATIVE: CASE EVENT DATE: 2008
